FAERS Safety Report 6804936-3 (Version None)
Quarter: 2010Q2

REPORT INFORMATION
  Report Type: 
  Country: None (occurrence: None)
  Receive Date: 20100628
  Receipt Date: 20070725
  Transmission Date: 20101027
  Serious: No
  Sender: FDA-Public Use
  Company Number: US-PFIZER INC-2007050953

PATIENT
  Age: 18 Year
  Sex: Male

DRUGS (2)
  1. GEODON [Suspect]
     Dates: start: 20021204
  2. GRAPEFRUIT JUICE [Suspect]

REACTIONS (1)
  - DRUG INEFFECTIVE [None]
